FAERS Safety Report 8899721 (Version 1)
Quarter: 2012Q4

REPORT INFORMATION
  Report Type: 
  Country: US (occurrence: US)
  Receive Date: 20121109
  Receipt Date: 20121109
  Transmission Date: 20130627
  Serious: Yes (Hospitalization)
  Sender: FDA-Public Use
  Company Number: US-ABBOTT-12P-163-1002922-00

PATIENT
  Age: 74 Year
  Sex: Female
  Weight: 49.89 kg

DRUGS (5)
  1. VICODIN [Suspect]
     Indication: PAIN
     Route: 048
     Dates: start: 201112, end: 20120525
  2. CAPECITABINE [Suspect]
     Indication: PANCREATIC CARCINOMA METASTATIC
     Route: 048
     Dates: start: 20120522, end: 20120530
  3. CAPECITABINE [Suspect]
     Dates: start: 20120602
  4. INVESTIGATIONAL DRUG [Suspect]
     Indication: PANCREATIC CARCINOMA METASTATIC
     Route: 048
     Dates: start: 20120522, end: 20120530
  5. INVESTIGATIONAL DRUG [Suspect]
     Dates: start: 20120602

REACTIONS (4)
  - Abdominal pain [Recovered/Resolved with Sequelae]
  - Constipation [Recovered/Resolved with Sequelae]
  - Post procedural haemorrhage [Unknown]
  - Pancreatic carcinoma metastatic [Unknown]
